FAERS Safety Report 23918037 (Version 4)
Quarter: 2025Q1

REPORT INFORMATION
  Report Type: Spontaneous
  Country: US (occurrence: US)
  Receive Date: 20240530
  Receipt Date: 20250206
  Transmission Date: 20250408
  Serious: No
  Sender: BRISTOL-MYERS SQUIBB COMPANY
  Company Number: US-BRISTOL-MYERS SQUIBB COMPANY-2024-085922

PATIENT
  Age: 80 Year
  Sex: Male

DRUGS (1)
  1. REVLIMID [Suspect]
     Active Substance: LENALIDOMIDE
     Indication: Plasma cell myeloma
     Dosage: FREQ: CYCLIC/FOR 21 DAYS
     Route: 048

REACTIONS (6)
  - Constipation [Unknown]
  - Periorbital swelling [Unknown]
  - Product dose omission in error [Unknown]
  - Therapy interrupted [Unknown]
  - Product prescribing issue [Unknown]
  - Arthralgia [Unknown]
